FAERS Safety Report 25067800 (Version 1)
Quarter: 2025Q1

REPORT INFORMATION
  Report Type: Report from Study
  Country: US (occurrence: US)
  Receive Date: 20250312
  Receipt Date: 20250312
  Transmission Date: 20250409
  Serious: Yes (Other)
  Sender: BAYER HEALTHCARE PHARMACEUTICALS INC.
  Company Number: US-BAYER-2025A030993

PATIENT
  Sex: Female

DRUGS (3)
  1. ADEMPAS [Suspect]
     Active Substance: RIOCIGUAT
     Indication: Pulmonary arterial hypertension
  2. ADEMPAS [Suspect]
     Active Substance: RIOCIGUAT
     Indication: Pulmonary arterial hypertension
     Dosage: 2.5 MG, TID
     Route: 048
     Dates: start: 202008
  3. TYVASO DPI [Concomitant]
     Active Substance: TREPROSTINIL

REACTIONS (8)
  - Bendopnoea [None]
  - General physical health deterioration [None]
  - Dyspnoea [None]
  - Dyspnoea exertional [None]
  - Peripheral swelling [None]
  - Decreased activity [None]
  - Mood altered [None]
  - Joint swelling [None]
